FAERS Safety Report 6966992-1 (Version None)
Quarter: 2010Q3

REPORT INFORMATION
  Report Type: 
  Country: None (occurrence: None)
  Receive Date: 20100907
  Receipt Date: 20100831
  Transmission Date: 20110219
  Serious: No
  Sender: FDA-Public Use
  Company Number: US-BIOGENIDEC-2010BI011540

PATIENT
  Age: 60 Year
  Sex: Female

DRUGS (1)
  1. TYSABRI [Suspect]
     Indication: MULTIPLE SCLEROSIS
     Route: 042
     Dates: start: 20090804

REACTIONS (6)
  - ASTHENIA [None]
  - ASTHMA [None]
  - COUGH [None]
  - DRUG INEFFECTIVE [None]
  - HOT FLUSH [None]
  - MUSCULAR WEAKNESS [None]
